FAERS Safety Report 4983508-X (Version None)
Quarter: 2006Q2

REPORT INFORMATION
  Report Type: 
  Country: None (occurrence: None)
  Receive Date: 20060426
  Receipt Date: 20050901
  Transmission Date: 20061013
  Serious: Yes (Hospitalization)
  Sender: FDA-Public Use
  Company Number: US-MERCK-0509USA00507

PATIENT
  Age: 73 Year
  Sex: Female

DRUGS (13)
  1. VIOXX [Suspect]
     Indication: ARTHRALGIA
     Route: 048
     Dates: start: 19991201, end: 20040122
  2. CEFALEXIN (CEPHALORIDINE) [Concomitant]
     Route: 048
  3. ATENOLOL [Concomitant]
     Route: 048
  4. LISINOPRIL [Concomitant]
     Route: 048
  5. POTASSIUM CHLORIDE [Concomitant]
     Route: 048
  6. LEVOTHYROXINE SODIUM [Concomitant]
     Route: 048
  7. LEVOTHYROXINE SODIUM [Concomitant]
     Route: 048
  8. ESTROGENS, CONJUGATED [Concomitant]
     Route: 048
  9. CARBIDOPA AND LEVODOPA [Concomitant]
     Route: 048
  10. ASPIRIN [Concomitant]
     Indication: CEREBROVASCULAR ACCIDENT PROPHYLAXIS
     Route: 048
  11. PLAVIX [Concomitant]
     Indication: CEREBROVASCULAR ACCIDENT PROPHYLAXIS
     Route: 048
  12. FERROUS SULFATE [Concomitant]
     Route: 048
  13. FUROSEMIDE [Concomitant]
     Route: 065

REACTIONS (21)
  - ACUTE MYOCARDIAL INFARCTION [None]
  - ACUTE PRERENAL FAILURE [None]
  - ANAEMIA [None]
  - CARDIAC FAILURE [None]
  - CARDIAC FAILURE CONGESTIVE [None]
  - CAROTID ARTERY STENOSIS [None]
  - CEREBRAL ATROPHY [None]
  - CEREBRAL ISCHAEMIA [None]
  - CEREBROVASCULAR ACCIDENT [None]
  - CORONARY ARTERY DISEASE [None]
  - FALL [None]
  - LEUKOCYTOSIS [None]
  - LUNG INFILTRATION [None]
  - MENINGIOMA [None]
  - MENISCUS LESION [None]
  - OSTEOPOROSIS [None]
  - PULMONARY OEDEMA [None]
  - RENAL FAILURE [None]
  - RETROPERITONEAL HAEMORRHAGE [None]
  - TRANSIENT ISCHAEMIC ATTACK [None]
  - UPPER GASTROINTESTINAL HAEMORRHAGE [None]
